FAERS Safety Report 4690883-2 (Version None)
Quarter: 2005Q2

REPORT INFORMATION
  Report Type: 
  Country: None (occurrence: None)
  Receive Date: 20050614
  Receipt Date: 20050601
  Transmission Date: 20051028
  Serious: Yes (Other)
  Sender: FDA-Public Use
  Company Number: 2005072098

PATIENT
  Sex: Male

DRUGS (1)
  1. NATURAL CITRUS LISTERINE (MEHTOL, METHYL SALICYLATE, EUCALYPTOL, THYMO [Suspect]
     Dosage: ORAL TOPICAL
     Route: 061

REACTIONS (1)
  - NO ADVERSE DRUG EFFECT [None]
